FAERS Safety Report 4750519-9 (Version None)
Quarter: 2005Q3

REPORT INFORMATION
  Report Type: 
  Country: None (occurrence: None)
  Receive Date: 20050823
  Receipt Date: 20050309
  Transmission Date: 20060218
  Serious: Yes (Hospitalization, Disabling)
  Sender: FDA-Public Use
  Company Number: US-MERCK-0503USA01976

PATIENT
  Age: 60 Year
  Sex: Female
  Weight: 86 kg

DRUGS (16)
  1. VIOXX [Suspect]
     Indication: OSTEOARTHRITIS
     Route: 048
     Dates: start: 20030701, end: 20030930
  2. VIOXX [Suspect]
     Route: 048
     Dates: start: 20030930, end: 20041005
  3. VIOXX [Suspect]
     Indication: EXOSTOSIS
     Route: 048
     Dates: start: 20030701, end: 20030930
  4. VIOXX [Suspect]
     Route: 048
     Dates: start: 20030930, end: 20041005
  5. CARTIA XT [Concomitant]
     Route: 065
  6. LOTREL [Concomitant]
     Route: 065
     Dates: start: 20010801
  7. COUMADIN [Concomitant]
     Route: 065
     Dates: start: 20010801
  8. FOSAMAX [Concomitant]
     Route: 065
     Dates: start: 20030901
  9. SYNTHROID [Concomitant]
     Route: 065
     Dates: end: 20030804
  10. XANAX [Concomitant]
     Route: 065
  11. LORTAB [Concomitant]
     Route: 065
  12. LEXAPRO [Concomitant]
     Route: 065
  13. ARMOUR THYROID TABLETS [Concomitant]
     Route: 065
     Dates: start: 20030804
  14. HYDROCODONE BITARTRATE AND ACETAMINOPHEN [Concomitant]
     Route: 065
  15. LOVENOX [Concomitant]
     Route: 065
     Dates: start: 20040305
  16. ISOSORBIDE [Concomitant]
     Route: 065

REACTIONS (16)
  - ANGINA PECTORIS [None]
  - ANXIETY [None]
  - ATELECTASIS [None]
  - BACK PAIN [None]
  - BLOOD CHOLESTEROL INCREASED [None]
  - BLOOD TRIGLYCERIDES INCREASED [None]
  - CEREBROVASCULAR ACCIDENT [None]
  - CORONARY ARTERY OCCLUSION [None]
  - DYSPNOEA [None]
  - FIBROADENOMA OF BREAST [None]
  - FIBROMYALGIA [None]
  - LEUKOCYTOSIS [None]
  - PALPITATIONS [None]
  - RENAL ARTERY STENOSIS [None]
  - SYNCOPE [None]
  - TRANSIENT ISCHAEMIC ATTACK [None]
